FAERS Safety Report 7152540-2 (Version None)
Quarter: 2010Q4

REPORT INFORMATION
  Report Type: 
  Country: None (occurrence: None)
  Receive Date: 20101213
  Receipt Date: 20101201
  Transmission Date: 20110411
  Serious: Yes (Other)
  Sender: FDA-Public Use
  Company Number: US-CELGENEUS-163-21880-10120401

PATIENT
  Sex: Female

DRUGS (1)
  1. REVLIMID [Suspect]
     Route: 048
     Dates: start: 20101101

REACTIONS (7)
  - ASTHENIA [None]
  - BACK PAIN [None]
  - CONTUSION [None]
  - HAEMORRHAGE [None]
  - PALLOR [None]
  - PSORIASIS [None]
  - VARICOSE VEIN [None]
